FAERS Safety Report 10710258 (Version 2)
Quarter: 2015Q1

REPORT INFORMATION
  Report Type: Spontaneous
  Country: US (occurrence: None)
  Receive Date: 20150112
  Receipt Date: 20150130
  Transmission Date: 20150721
  Serious: Yes (Other)
  Sender: FDA-Public Use
  Company Number: BTG00174

PATIENT
  Age: 65 Year
  Sex: Male

DRUGS (10)
  1. DIGOXIN (BETA-ACETYLDIGOXIN) [Suspect]
     Active Substance: .BETA.-ACETYLDIGOXIN
     Indication: PRODUCT USED FOR UNKNOWN INDICATION
  2. DIGIFAB [Suspect]
     Active Substance: OVINE DIGOXIN IMMUNE FAB
     Indication: TOXICITY TO VARIOUS AGENTS
     Dosage: 4 DF, SINGLE
     Dates: start: 20141230, end: 20141230
  3. FOLIC ACID. [Concomitant]
     Active Substance: FOLIC ACID
  4. ZYLOPRIM (ALLOPURINOL) [Concomitant]
  5. VITAMIN C (CALCIUM ASCORBATE) [Concomitant]
  6. B COMPLEX (BIOTIN , CALCIUM PANTOTHENATE, CHLOINE BITRARTRATE, CYANOCOBALIN, FOLIC ACID, INOSITOL, NICOTINAMIDE, PYRODOXINE HYDROCHLORIDE, RIBOFLAVIN, THIAMIE MONONITRATE) [Concomitant]
  7. TYLENOL [Concomitant]
     Active Substance: ACETAMINOPHEN
  8. SENSIPAR (CINACALCET HYDROCHLORIDE) [Concomitant]
  9. PEPCID [Concomitant]
     Active Substance: FAMOTIDINE
  10. PACERONE (AMIODARONE HYDROCHLORIDE) [Concomitant]

REACTIONS (1)
  - Drug ineffective [None]
